FAERS Safety Report 8114505-3 (Version None)
Quarter: 2012Q1

REPORT INFORMATION
  Report Type: 
  Country: None (occurrence: None)
  Receive Date: 20120206
  Receipt Date: 20120124
  Transmission Date: 20120608
  Serious: Yes (Hospitalization, Other)
  Sender: FDA-Public Use
  Company Number: ES-SHIRE-SPV1-2011-01481

PATIENT
  Sex: Male

DRUGS (3)
  1. ANTIHISTAMINES [Concomitant]
     Indication: PREMEDICATION
  2. ACETAMINOPHEN [Concomitant]
     Indication: PREMEDICATION
  3. ELAPRASE [Suspect]
     Indication: MUCOPOLYSACCHARIDOSIS II
     Dosage: UNK UNK, 1X/WEEK
     Route: 041
     Dates: start: 20110523

REACTIONS (3)
  - HISTIOCYTOSIS [None]
  - OSTEOMYELITIS [None]
  - NASOPHARYNGITIS [None]
